FAERS Safety Report 4895203-6 (Version None)
Quarter: 2006Q1

REPORT INFORMATION
  Report Type: 
  Country: None (occurrence: None)
  Receive Date: 20060125
  Receipt Date: 20050117
  Transmission Date: 20060701
  Serious: Yes (Hospitalization)
  Sender: FDA-Public Use
  Company Number: 13258

PATIENT
  Age: 43 Year
  Sex: Male
  Weight: 105 kg

DRUGS (7)
  1. NITROGLYCERIDE [Suspect]
     Indication: PROCEDURAL HYPERTENSION
     Dosage: 0.5 MG ONCE IV
     Route: 042
  2. NITROGLYCERIDE [Suspect]
     Indication: PROCEDURAL HYPERTENSION
     Dosage: 0.5 MG ONCE IV
     Route: 042
  3. NIFEDIPINE [Concomitant]
  4. THIOPENTAL SODIUM [Concomitant]
  5. FENTANYL [Concomitant]
  6. ATRACURIUM [Concomitant]
  7. ISOFLURANE [Concomitant]

REACTIONS (1)
  - HYPOXIA [None]
